FAERS Safety Report 15430106 (Version 4)
Quarter: 2019Q2

REPORT INFORMATION
  Report Type: Spontaneous
  Country: US (occurrence: US)
  Receive Date: 20180926
  Receipt Date: 20190516
  Transmission Date: 20190711
  Serious: Yes (Hospitalization)
  Sender: FDA-Public Use
  Company Number: US-PUMA BIOTECHNOLOGY, LTD.-2018US009316

PATIENT

DRUGS (3)
  1. NERLYNX [Suspect]
     Active Substance: NERATINIB
     Indication: BREAST CANCER STAGE IV
     Dosage: 240 MG, DAILY
     Route: 048
     Dates: start: 20180601, end: 201808
  2. NERLYNX [Suspect]
     Active Substance: NERATINIB
     Indication: METASTASES TO BONE
     Dosage: 3 TABLETS DAILY
     Route: 048
     Dates: start: 20180906, end: 20181129
  3. NERLYNX [Suspect]
     Active Substance: NERATINIB
     Indication: METASTASES TO CENTRAL NERVOUS SYSTEM

REACTIONS (8)
  - Off label use [Unknown]
  - Cognitive disorder [Unknown]
  - Metastases to central nervous system [Unknown]
  - Fatigue [Unknown]
  - Metastases to bone [Unknown]
  - White blood cell count decreased [Recovered/Resolved]
  - Diarrhoea [Unknown]
  - Hospitalisation [Recovered/Resolved]

NARRATIVE: CASE EVENT DATE: 2018
